FAERS Safety Report 8821562 (Version 2)
Quarter: 2012Q4

REPORT INFORMATION
  Report Type: 
  Country: US (occurrence: US)
  Receive Date: 20121002
  Receipt Date: 20121010
  Transmission Date: 20130627
  Serious: Yes (Other)
  Sender: FDA-Public Use
  Company Number: CHPA2012US020301

PATIENT
  Age: 77 Year
  Sex: Female

DRUGS (1)
  1. EXCEDRIN TENSION HEADACHE [Suspect]
     Indication: TENSION HEADACHE
     Dosage: Unk, A COUPLE TIMES A WEEK
     Route: 048
     Dates: start: 1992

REACTIONS (1)
  - Cataract [Not Recovered/Not Resolved]
